FAERS Safety Report 16615893 (Version 1)
Quarter: 2019Q3

REPORT INFORMATION
  Report Type: Spontaneous
  Country: US (occurrence: US)
  Receive Date: 20190723
  Receipt Date: 20190723
  Transmission Date: 20191004
  Serious: Yes (Hospitalization, Other)
  Sender: FDA-Public Use
  Company Number: US-MYLANLABS-2019M1067493

PATIENT
  Age: 30 Year
  Sex: Female
  Weight: 63.9 kg

DRUGS (16)
  1. FIRDAPSE [Suspect]
     Active Substance: AMIFAMPRIDINE
     Indication: MYASTHENIC SYNDROME
     Dosage: 10 MILLIGRAM, QID
     Route: 048
     Dates: start: 2017, end: 201904
  2. FIRDAPSE [Suspect]
     Active Substance: AMIFAMPRIDINE
     Dosage: 1 DOSAGE FORM, QID
     Route: 048
     Dates: start: 201905
  3. MESTINON [Suspect]
     Active Substance: PYRIDOSTIGMINE BROMIDE
     Dosage: 180 MILLIGRAM, PM
     Route: 048
     Dates: start: 2019
  4. MESTINON [Suspect]
     Active Substance: PYRIDOSTIGMINE BROMIDE
     Dosage: 240 MILLIGRAM, QID
     Dates: start: 201905, end: 201905
  5. BENADRYL [Concomitant]
     Active Substance: DIPHENHYDRAMINE HYDROCHLORIDE
  6. IBUPROFEN. [Concomitant]
     Active Substance: IBUPROFEN
     Indication: HEADACHE
     Dosage: 800 MILLIGRAM, Q8H
  7. ZZZQUIL NIGHTTIME SLEEP-AID [Concomitant]
     Active Substance: DIPHENHYDRAMINE HYDROCHLORIDE
     Dosage: 100-125 MG , PM
     Route: 048
     Dates: end: 201905
  8. FIRDAPSE [Suspect]
     Active Substance: AMIFAMPRIDINE
     Dosage: 2 DOSAGE FORM, QID
     Route: 048
     Dates: start: 201904, end: 20190520
  9. FIRDAPSE [Suspect]
     Active Substance: AMIFAMPRIDINE
     Dosage: 1 DOSAGE FORM, QD
     Route: 048
     Dates: start: 201905, end: 201905
  10. MESTINON [Suspect]
     Active Substance: PYRIDOSTIGMINE BROMIDE
     Dosage: 120 MILLIGRAM, QID (MAXIMUM DOSE)
     Route: 048
     Dates: start: 201905, end: 201905
  11. FIRDAPSE [Suspect]
     Active Substance: AMIFAMPRIDINE
     Dosage: 1 DOSAGE FORM, QID
     Route: 048
     Dates: start: 201905, end: 201905
  12. MESTINON [Suspect]
     Active Substance: PYRIDOSTIGMINE BROMIDE
     Indication: MYASTHENIC SYNDROME
     Dosage: 4 DOSAGE FORM (EVERY 4-6 HOURS)
     Dates: end: 201905
  13. MESTINON [Suspect]
     Active Substance: PYRIDOSTIGMINE BROMIDE
     Dosage: 60 MILLIGRAM, BID
     Route: 048
     Dates: start: 2019
  14. ESCITALOPRAM [Concomitant]
     Active Substance: ESCITALOPRAM OXALATE
     Dosage: 20 MILLIGRAM, QD
     Route: 048
  15. LITHIUM. [Suspect]
     Active Substance: LITHIUM
     Indication: PRODUCT USED FOR UNKNOWN INDICATION
     Dosage: UNK
  16. VITAMIN B12 [Concomitant]
     Active Substance: CYANOCOBALAMIN
     Dosage: 500 MICROGRAM, QD
     Route: 048

REACTIONS (14)
  - Restrictive pulmonary disease [Unknown]
  - Decubitus ulcer [Unknown]
  - Blood bilirubin increased [Recovering/Resolving]
  - Electrocardiogram T wave abnormal [Unknown]
  - Product dose omission [Unknown]
  - Diarrhoea [Unknown]
  - Hypokalaemia [Recovered/Resolved]
  - Myasthenic syndrome [Recovering/Resolving]
  - Therapeutic response shortened [Unknown]
  - Cholinergic syndrome [Recovered/Resolved]
  - Mental disorder [Unknown]
  - Headache [Unknown]
  - Insomnia [Recovered/Resolved]
  - Intentional product use issue [Unknown]

NARRATIVE: CASE EVENT DATE: 201904
